FAERS Safety Report 13918087 (Version 1)
Quarter: 2017Q3

REPORT INFORMATION
  Report Type: Spontaneous
  Country: US (occurrence: US)
  Receive Date: 20170829
  Receipt Date: 20170829
  Transmission Date: 20171127
  Serious: Yes (Other)
  Sender: FDA-Public Use
  Company Number: US-ASTRAZENECA-2017SE66736

PATIENT
  Sex: Female
  Weight: 45.4 kg

DRUGS (7)
  1. PAXIL GENERIC [Concomitant]
  2. METOPROLOL SUCCINATE. [Suspect]
     Active Substance: METOPROLOL SUCCINATE
     Dosage: DAILY
     Route: 048
  3. PROAIR HFA [Concomitant]
     Active Substance: ALBUTEROL SULFATE
     Indication: DYSPNOEA
     Dosage: AS REQUIRED
  4. SYMBICORT [Suspect]
     Active Substance: BUDESONIDE\FORMOTEROL FUMARATE DIHYDRATE
     Indication: DYSPNOEA
     Dosage: 160/4.5 ONE PUFF TWO TIMES A DAY
     Route: 055
  5. ASPIRIN. [Concomitant]
     Active Substance: ASPIRIN
     Dosage: DAILY
  6. SYMBICORT [Suspect]
     Active Substance: BUDESONIDE\FORMOTEROL FUMARATE DIHYDRATE
     Indication: DYSPNOEA
     Dosage: 160/4.5 ONE PUFF TWO TIMES A DAY
     Route: 055
     Dates: start: 20170516
  7. SYMBICORT [Suspect]
     Active Substance: BUDESONIDE\FORMOTEROL FUMARATE DIHYDRATE
     Indication: DYSPNOEA
     Dosage: 160/4.5 TWO PUFF TWO TIMES A DAY
     Route: 055

REACTIONS (7)
  - Dyspnoea [Unknown]
  - Myocardial infarction [Unknown]
  - Body height decreased [Unknown]
  - Intentional product misuse [Unknown]
  - Breast cancer female [Unknown]
  - Weight decreased [Unknown]
  - Off label use [Unknown]
